FAERS Safety Report 5628713-4 (Version None)
Quarter: 2008Q1

REPORT INFORMATION
  Report Type: 
  Country: None (occurrence: None)
  Receive Date: 20080215
  Receipt Date: 20080207
  Transmission Date: 20080703
  Serious: Yes (Hospitalization, Other)
  Sender: FDA-Public Use
  Company Number: US-PFIZER INC-2008012280

PATIENT
  Sex: Female
  Weight: 86.363 kg

DRUGS (4)
  1. LIPITOR [Suspect]
     Indication: BLOOD CHOLESTEROL INCREASED
     Route: 048
     Dates: start: 20010201, end: 20080117
  2. TOPROL [Concomitant]
  3. ASPIRIN [Concomitant]
  4. NIASPAN [Concomitant]

REACTIONS (6)
  - ARTERIAL DISORDER [None]
  - BREAST CANCER [None]
  - ELECTIVE SURGERY [None]
  - HEPATIC ENZYME INCREASED [None]
  - ISCHAEMIA [None]
  - PAIN [None]
